FAERS Safety Report 19735209 (Version 2)
Quarter: 2021Q3

REPORT INFORMATION
  Report Type: Spontaneous
  Country: US (occurrence: US)
  Receive Date: 20210823
  Receipt Date: 20210823
  Transmission Date: 20211014
  Serious: No
  Sender: FDA-Public Use
  Company Number: US-PFIZER INC-2019294073

PATIENT
  Age: 65 Year
  Sex: Female

DRUGS (1)
  1. XELJANZ [Suspect]
     Active Substance: TOFACITINIB CITRATE
     Dosage: 5 MG, 1X/DAY [STARTED TAKING 1 PILL A DAY INSTEAD OF 2 A DAY]

REACTIONS (3)
  - Dysphonia [Unknown]
  - Intentional product misuse [Unknown]
  - Seasonal allergy [Unknown]
